FAERS Safety Report 9677585 (Version 1)
Quarter: 2013Q4

REPORT INFORMATION
  Report Type: Spontaneous
  Country: US (occurrence: US)
  Receive Date: 20131108
  Receipt Date: 20131108
  Transmission Date: 20140711
  Serious: Yes (Other)
  Sender: FDA-Public Use
  Company Number: US-B.I. PHARMACEUTICALS,INC./RIDGEFIELD-2013-BI-35576BP

PATIENT
  Sex: Male
  Weight: 60 kg

DRUGS (8)
  1. PRADAXA [Suspect]
     Indication: CEREBROVASCULAR ACCIDENT PROPHYLAXIS
     Dosage: 300 MG
     Route: 048
     Dates: start: 2010
  2. PRADAXA [Suspect]
     Indication: ATRIAL FIBRILLATION
     Dosage: 150 MG
     Route: 048
  3. PRADAXA [Suspect]
     Indication: ARRHYTHMIA
  4. METOPROLOL SUCCINATE XR [Concomitant]
     Indication: ATRIAL FIBRILLATION
     Dosage: 50 MG
     Route: 048
     Dates: start: 2010
  5. METOPROLOL SUCCINATE XR [Concomitant]
     Indication: ARRHYTHMIA
  6. MULTAQ [Concomitant]
     Indication: ATRIAL FIBRILLATION
     Dosage: 400 MG
     Route: 048
  7. MULTAQ [Concomitant]
     Indication: ARRHYTHMIA
     Dosage: 400 MG
     Route: 048
     Dates: start: 2010
  8. TRILEPTAL [Concomitant]
     Indication: TRIGEMINAL NEURALGIA
     Route: 048
     Dates: start: 2007

REACTIONS (8)
  - Dementia [Not Recovered/Not Resolved]
  - Contusion [Not Recovered/Not Resolved]
  - Laceration [Not Recovered/Not Resolved]
  - Balance disorder [Not Recovered/Not Resolved]
  - Decreased appetite [Not Recovered/Not Resolved]
  - Weight decreased [Not Recovered/Not Resolved]
  - Contusion [Not Recovered/Not Resolved]
  - Off label use [Not Recovered/Not Resolved]
